FAERS Safety Report 5839170-7 (Version None)
Quarter: 2008Q3

REPORT INFORMATION
  Report Type: 
  Country: None (occurrence: None)
  Receive Date: 20080808
  Receipt Date: 20080729
  Transmission Date: 20090109
  Serious: Yes (Hospitalization)
  Sender: FDA-Public Use
  Company Number: CA-PFIZER INC-2008056223

PATIENT
  Sex: Male
  Weight: 118 kg

DRUGS (11)
  1. SU-011,248 [Suspect]
     Indication: METASTATIC RENAL CELL CARCINOMA
     Route: 048
  2. PLAVIX [Concomitant]
     Route: 048
  3. LIPITOR [Concomitant]
     Route: 048
     Dates: start: 20070601
  4. ASPIRIN [Concomitant]
     Route: 048
     Dates: start: 20070601
  5. SYMBICORT [Concomitant]
     Route: 055
  6. VENTOLIN [Concomitant]
     Route: 055
  7. VALSARTAN [Concomitant]
     Route: 048
  8. ALPHAGAN [Concomitant]
     Route: 047
  9. TRAVATAN [Concomitant]
     Route: 047
  10. MORPHINE [Concomitant]
     Route: 048
  11. NITROGLYCERIN [Concomitant]
     Route: 055
     Dates: start: 20070601

REACTIONS (1)
  - PULMONARY EMBOLISM [None]
